FAERS Safety Report 15178237 (Version 1)
Quarter: 2018Q3

REPORT INFORMATION
  Report Type: Spontaneous
  Country: FR (occurrence: FR)
  Receive Date: 20180721
  Receipt Date: 20180721
  Transmission Date: 20181010
  Serious: Yes (Hospitalization, Other)
  Sender: FDA-Public Use
  Company Number: FR-AUROBINDO-AUR-APL-2018-036461

PATIENT
  Age: 87 Year
  Sex: Female
  Weight: 64 kg

DRUGS (4)
  1. KARDEGIC [Suspect]
     Active Substance: ASPIRIN DL-LYSINE
     Indication: THROMBOSIS PROPHYLAXIS
     Dosage: 100 MILLIGRAM, DAILY
     Route: 048
     Dates: start: 20171208, end: 20180612
  2. CELECTOL [Concomitant]
     Active Substance: CELIPROLOL HYDROCHLORIDE
     Indication: HYPERTENSION
     Dosage: ()
     Route: 048
  3. PREDNISONE. [Suspect]
     Active Substance: PREDNISONE
     Indication: TEMPORAL ARTERITIS
     Dosage: ()
     Route: 048
     Dates: start: 20170926, end: 20180612
  4. ROACTEMRA [Suspect]
     Active Substance: TOCILIZUMAB
     Indication: TEMPORAL ARTERITIS
     Route: 030
     Dates: start: 20180524, end: 20180524

REACTIONS (4)
  - Abdominal pain [Unknown]
  - Peritonitis [Recovering/Resolving]
  - Large intestine perforation [Recovering/Resolving]
  - Faecal vomiting [Recovered/Resolved]

NARRATIVE: CASE EVENT DATE: 201806
